FAERS Safety Report 6453808-5 (Version None)
Quarter: 2009Q4

REPORT INFORMATION
  Report Type: 
  Country: None (occurrence: None)
  Receive Date: 20091123
  Receipt Date: 20091123
  Transmission Date: 20100525
  Serious: No
  Sender: FDA-Public Use
  Company Number: None

PATIENT
  Sex: Male
  Weight: 86.1834 kg

DRUGS (2)
  1. SINEX VAPOSPRAY 12 HOUR DECONGESTANT PROCTOR AND GAMBLE [Suspect]
     Indication: BRONCHITIS
     Dosage: TWO SPRAYS EVERY 12 HOURS NASAL
     Route: 045
     Dates: start: 20090910, end: 20091110
  2. SINEX VAPOSPRAY 12 HOUR DECONGESTANT PROCTOR AND GAMBLE [Suspect]
     Indication: SINUSITIS
     Dosage: TWO SPRAYS EVERY 12 HOURS NASAL
     Route: 045
     Dates: start: 20090910, end: 20091110

REACTIONS (2)
  - DRUG INEFFECTIVE [None]
  - SINUS CONGESTION [None]
